FAERS Safety Report 9925369 (Version 1)
Quarter: 2014Q1

REPORT INFORMATION
  Report Type: Spontaneous
  Country: US (occurrence: US)
  Receive Date: 20140226
  Receipt Date: 20140226
  Transmission Date: 20141002
  Serious: Yes (Other)
  Sender: FDA-Public Use
  Company Number: US-PFIZER INC-2014052872

PATIENT
  Sex: Male

DRUGS (2)
  1. LYRICA [Suspect]
     Dosage: 100 MG, DAILY
     Dates: start: 2013
  2. LYRICA [Suspect]
     Dosage: 400 MG, DAILY

REACTIONS (12)
  - Major depression [Unknown]
  - Colitis ulcerative [Unknown]
  - Intervertebral disc disorder [Unknown]
  - Spinal disorder [Unknown]
  - Pain [Unknown]
  - Depression [Unknown]
  - Irritability [Unknown]
  - Anger [Unknown]
  - Vision blurred [Unknown]
  - Tinnitus [Unknown]
  - Headache [Unknown]
  - Dry mouth [Unknown]
